FAERS Safety Report 18380457 (Version 2)
Quarter: 2020Q4

REPORT INFORMATION
  Report Type: Spontaneous
  Country: FR (occurrence: FR)
  Receive Date: 20201014
  Receipt Date: 20201228
  Transmission Date: 20210114
  Serious: Yes (Other)
  Sender: FDA-Public Use
  Company Number: FR-ACCORD-204991

PATIENT
  Age: 30 Year
  Sex: Male
  Weight: 90 kg

DRUGS (1)
  1. ARIPIPRAZOLE MYLAN PHARMA [Suspect]
     Active Substance: ARIPIPRAZOLE
     Indication: MENTAL DISORDER
     Route: 048
     Dates: start: 20161101

REACTIONS (1)
  - Thrombophlebitis [Recovered/Resolved]

NARRATIVE: CASE EVENT DATE: 20200924
